FAERS Safety Report 5929474-1 (Version None)
Quarter: 2008Q3

REPORT INFORMATION
  Report Type: 
  Country: None (occurrence: None)
  Receive Date: 20080922
  Receipt Date: 20070815
  Transmission Date: 20090109
  Serious: No
  Sender: FDA-Public Use
  Company Number: T200700945

PATIENT
  Age: 47 Year
  Sex: Female
  Weight: 81.2 kg

DRUGS (16)
  1. OXYCODONE HCL [Suspect]
     Indication: PAIN
     Dosage: 5 MG, BID, ORAL
     Route: 048
     Dates: start: 20070804, end: 20070801
  2. HYDROCODONE BITARTRATE + ACETAMINOPHEN [Suspect]
     Indication: PAIN
     Dosage: ORAL
     Route: 048
     Dates: end: 20070801
  3. KLONOPIN [Concomitant]
  4. CYMBALTA [Concomitant]
  5. ALTACE [Concomitant]
  6. NEURONTIN [Concomitant]
  7. SIMVASTATIN [Concomitant]
  8. DETROL /01350201/ (TOLTERODONE) [Concomitant]
  9. ISOSORBIDE (ISOSORBIDE) [Concomitant]
  10. PLAVIX [Concomitant]
  11. NEXIUM [Concomitant]
  12. SOMA [Concomitant]
  13. VERELAN [Concomitant]
  14. PREDNISONE [Concomitant]
  15. COMBIVENT /01033501/ (IPRATROPIUM BROMIDE, SALBUTAMOL) [Concomitant]
  16. ALBUTEROL /00139501/ (SALBUTAMOL) [Concomitant]

REACTIONS (4)
  - DRUG INEFFECTIVE [None]
  - HYPERSOMNIA [None]
  - MEDICATION RESIDUE [None]
  - PRURITUS [None]
